FAERS Safety Report 6011436-X (Version None)
Quarter: 2008Q4

REPORT INFORMATION
  Report Type: 
  Country: None (occurrence: None)
  Receive Date: 20081218
  Receipt Date: 20030401
  Transmission Date: 20090506
  Serious: Yes (Death)
  Sender: FDA-Public Use
  Company Number: US-ROCHE-335204

PATIENT
  Age: 73 Year
  Sex: Male
  Weight: 89.4 kg

DRUGS (1)
  1. ISOTRETINOIN [Suspect]
     Route: 048

REACTIONS (1)
  - DEATH [None]
